FAERS Safety Report 8553760-2 (Version None)
Quarter: 2012Q3

REPORT INFORMATION
  Report Type: 
  Country: None (occurrence: None)
  Receive Date: 20120731
  Receipt Date: 20120721
  Transmission Date: 20120928
  Serious: Yes (Hospitalization)
  Sender: FDA-Public Use
  Company Number: JP-GLAXOSMITHKLINE-B0793962A

PATIENT
  Sex: Female

DRUGS (2)
  1. LAMICTAL [Suspect]
     Route: 048
     Dates: start: 20111101, end: 20111107
  2. LAMICTAL [Suspect]
     Indication: SCHIZOPHRENIA
     Route: 048
     Dates: start: 20110901, end: 20111101

REACTIONS (11)
  - BRONCHOALVEOLAR LAVAGE ABNORMAL [None]
  - PNEUMONIA [None]
  - COMPUTERISED TOMOGRAM ABNORMAL [None]
  - LYMPHOCYTE PERCENTAGE INCREASED [None]
  - DYSPNOEA [None]
  - CD4/CD8 RATIO INCREASED [None]
  - LUNG INFILTRATION [None]
  - PYREXIA [None]
  - PRURITUS [None]
  - RASH [None]
  - RESPIRATORY FAILURE [None]
